FAERS Safety Report 4393252-8 (Version None)
Quarter: 2004Q3

REPORT INFORMATION
  Report Type: 
  Country: None (occurrence: None)
  Receive Date: 20040701
  Receipt Date: 20040615
  Transmission Date: 20050211
  Serious: Yes (Death)
  Sender: FDA-Public Use
  Company Number: 2004-DE-03316GD

PATIENT
  Age: 74 Year
  Sex: Male

DRUGS (5)
  1. METHOTREXATE [Suspect]
     Indication: B-CELL SMALL LYMPHOCYTIC LYMPHOMA
     Dosage: IT
     Route: 037
  2. CYTARABINE [Suspect]
     Indication: B-CELL SMALL LYMPHOCYTIC LYMPHOMA
     Dosage: IT
     Route: 037
  3. PREDNISOLONE [Suspect]
     Indication: B-CELL SMALL LYMPHOCYTIC LYMPHOMA
     Dosage: IT
     Route: 037
  4. METHYLPREDNISOLONE [Suspect]
     Indication: B-CELL SMALL LYMPHOCYTIC LYMPHOMA
  5. IMMUNE GLOBULIN INTRAVENOUS (HUMAN) [Suspect]
     Indication: B-CELL SMALL LYMPHOCYTIC LYMPHOMA
     Dosage: IV
     Route: 042

REACTIONS (7)
  - ASPERGILLOSIS [None]
  - AUTOIMMUNE DISORDER [None]
  - AUTONOMIC NEUROPATHY [None]
  - DRUG EFFECT DECREASED [None]
  - ENDOCARDITIS BACTERIAL [None]
  - PNEUMONIA [None]
  - SEPSIS [None]
